FAERS Safety Report 13568437 (Version 1)
Quarter: 2017Q2

REPORT INFORMATION
  Report Type: Spontaneous
  Country: FR (occurrence: FR)
  Receive Date: 20170522
  Receipt Date: 20170522
  Transmission Date: 20170830
  Serious: Yes (Hospitalization, Other)
  Sender: FDA-Public Use
  Company Number: FR-PFIZER INC-2017211625

PATIENT
  Age: 61 Year
  Sex: Female

DRUGS (13)
  1. SERESTA [Concomitant]
     Active Substance: OXAZEPAM
     Dosage: 50 MG, 1X/DAY AT 10 PM
     Route: 048
  2. AERIUS [Concomitant]
     Active Substance: DESLORATADINE
     Dosage: 5 MG, 2X/DAY
     Route: 048
  3. PARACETAMOL [Concomitant]
     Active Substance: ACETAMINOPHEN
     Indication: PAIN
     Dosage: 1 G, 4X/DAY IF PAIN
     Route: 048
  4. VANCOMYCIN [Concomitant]
     Active Substance: VANCOMYCIN
     Indication: ANTIBIOTIC THERAPY
     Dosage: 1250 MG, 2X/DAY (EVERY 12 HOURS)
     Dates: start: 20170315, end: 20170328
  5. FLAGYL [Concomitant]
     Active Substance: METRONIDAZOLE\METRONIDAZOLE HYDROCHLORIDE
     Indication: OSTEOMYELITIS
     Dosage: 50 MG, 3X/DAY
     Route: 048
     Dates: start: 20170328, end: 20170406
  6. HALDOL [Concomitant]
     Active Substance: HALOPERIDOL
     Dosage: 20 GTT, 2X/DAY (AT 8 AM AND AT 10 PM)
     Route: 048
  7. MEROPENEM. [Concomitant]
     Active Substance: MEROPENEM
     Indication: ANTIBIOTIC THERAPY
     Dosage: 2 G, 3X/DAY (EVERY 8 HOURS)
     Dates: start: 20170315, end: 20170328
  8. DALACINE [Suspect]
     Active Substance: CLINDAMYCIN HYDROCHLORIDE
     Indication: OSTEOMYELITIS
     Dosage: 600 MG, 3X/DAY (EVERY 8 HOURS)
     Route: 048
     Dates: start: 20170328, end: 20170406
  9. KEPPRA [Concomitant]
     Active Substance: LEVETIRACETAM
     Dosage: 500 MG, 2X/DAY
     Route: 048
  10. LOVENOX [Concomitant]
     Active Substance: ENOXAPARIN SODIUM
     Dosage: 1 DF, 1X/DAY
     Route: 058
  11. TARGOCID [Suspect]
     Active Substance: TEICOPLANIN
     Indication: OSTEOMYELITIS
     Dosage: 800 MG, 1X/DAY
     Route: 041
     Dates: start: 20170328, end: 20170406
  12. DIFFU K [Concomitant]
     Active Substance: POTASSIUM CHLORIDE
     Dosage: 600 MG, 2X/DAY  TO ADAPT ACCORDING TO POTASSIUM LEVEL
     Route: 048
  13. PHOSPHONEUROS [Concomitant]
     Active Substance: CALCIUM PHOSPHATE, DIBASIC, ANHYDROUS\MAGNESIUM GLYCEROPHOSPHATE\PHOSPHORIC ACID\SODIUM PHOSPHATE, DIBASIC
     Dosage: 50 GTT, 3X/DAY TO ADAPT ACCORDING TO PHOSPHORUS LEVEL
     Route: 048

REACTIONS (3)
  - Acute kidney injury [Recovered/Resolved]
  - Thrombocytopenia [Recovered/Resolved]
  - Rash maculo-papular [Recovered/Resolved]

NARRATIVE: CASE EVENT DATE: 201704
